FAERS Safety Report 9405925 (Version 11)
Quarter: 2016Q1

REPORT INFORMATION
  Report Type: Spontaneous
  Country: US (occurrence: US)
  Receive Date: 20130717
  Receipt Date: 20160215
  Transmission Date: 20160526
  Serious: Yes (Hospitalization, Other)
  Sender: FDA-Public Use
  Company Number: US-GLAXOSMITHKLINE-A1033750A

PATIENT
  Age: 8 Year
  Sex: Male

DRUGS (12)
  1. FLOLAN [Suspect]
     Active Substance: EPOPROSTENOL SODIUM
     Indication: PULMONARY ARTERIAL HYPERTENSION
     Dosage: CONCENTRATION: 45,000 NG/MLPUMP RATE: 74 ML/DAYVIAL STRENGTH: 1.5 MG140 NG/KG/ MIN45000 NG/MLVI[...]
     Route: 065
     Dates: start: 20080718
  2. FLOLAN [Suspect]
     Active Substance: EPOPROSTENOL SODIUM
     Dosage: UNK
  3. FLOLAN [Suspect]
     Active Substance: EPOPROSTENOL SODIUM
     Dosage: 174 DF (CONCENTRATION 60,000 NG/ML, PUMP RATE 86 ML/DAY, VIAL STRENGTH 1.5 MG), UNK
     Route: 042
  4. FLOLAN [Suspect]
     Active Substance: EPOPROSTENOL SODIUM
     Dosage: UNK
  5. FLOLAN [Suspect]
     Active Substance: EPOPROSTENOL SODIUM
     Dosage: 180 NG/KG/MIN , CO
  6. FLOLAN [Suspect]
     Active Substance: EPOPROSTENOL SODIUM
     Dosage: UNK
  7. LETAIRIS [Suspect]
     Active Substance: AMBRISENTAN
     Indication: PRODUCT USED FOR UNKNOWN INDICATION
     Dosage: UNK
  8. SILDENAFIL. [Concomitant]
     Active Substance: SILDENAFIL
  9. REVATIO [Concomitant]
     Active Substance: SILDENAFIL CITRATE
     Dosage: UNK
  10. FLOLAN [Suspect]
     Active Substance: EPOPROSTENOL SODIUM
     Dosage: 162NG/KG/MIN, 1.5MG VIAL STR, 60,000NG/ML CONC, 80 ML/DAY RATE
     Route: 042
  11. TRACLEER [Concomitant]
     Active Substance: BOSENTAN
  12. FLOLAN [Suspect]
     Active Substance: EPOPROSTENOL SODIUM
     Dosage: UNK

REACTIONS (13)
  - Device related infection [Unknown]
  - Central venous catheterisation [Unknown]
  - Haemoglobin decreased [Unknown]
  - Colonoscopy [Unknown]
  - Device issue [Unknown]
  - Infusion site infection [Recovered/Resolved with Sequelae]
  - Haemorrhage [Unknown]
  - Sinus congestion [Unknown]
  - Catheterisation cardiac [Unknown]
  - Catheter site erythema [Unknown]
  - Sinusitis [Unknown]
  - Hospitalisation [Unknown]
  - Cerebrovascular accident [Unknown]

NARRATIVE: CASE EVENT DATE: 20151005
